FAERS Safety Report 14430632 (Version 1)
Quarter: 2018Q1

REPORT INFORMATION
  Report Type: Spontaneous
  Country: JP (occurrence: JP)
  Receive Date: 20180124
  Receipt Date: 20180124
  Transmission Date: 20180509
  Serious: Yes (Hospitalization, Other)
  Sender: FDA-Public Use
  Company Number: JP-AMGEN-JPNSP2018006809

PATIENT
  Age: 46 Year
  Sex: Male

DRUGS (8)
  1. NEXIUM [Concomitant]
     Active Substance: ESOMEPRAZOLE MAGNESIUM
  2. CELECOX [Concomitant]
     Active Substance: CELECOXIB
  3. PHOSBLOCK [Concomitant]
     Active Substance: FERRIC HYDROXIDE
     Dosage: UNK
  4. FOSRENOL [Concomitant]
     Active Substance: LANTHANUM CARBONATE
  5. FEXOFENADINE HYDROCHLORIDE. [Concomitant]
     Active Substance: FEXOFENADINE HYDROCHLORIDE
  6. PARSABIV [Suspect]
     Active Substance: ETELCALCETIDE HYDROCHLORIDE
     Indication: HYPERPARATHYROIDISM SECONDARY
     Dosage: 5 MG, UNK
     Route: 042
     Dates: start: 20171113
  7. REBAMIPIDE [Concomitant]
     Active Substance: REBAMIPIDE
  8. ROCALTROL [Concomitant]
     Active Substance: CALCITRIOL

REACTIONS (1)
  - Shunt occlusion [Recovered/Resolved]

NARRATIVE: CASE EVENT DATE: 20171201
